FAERS Safety Report 8023498 (Version 3)
Quarter: 2013Q3

REPORT INFORMATION
  Report Type: Spontaneous
  Country: US (occurrence: US)
  Receive Date: 20110706
  Receipt Date: 20130809
  Transmission Date: 20140515
  Serious: Yes (Hospitalization, Other)
  Sender: FDA-Public Use
  Company Number: US-ROCHE-786658

PATIENT
  Age: 34 Year
  Sex: Male
  Weight: 74.8 kg

DRUGS (1)
  1. ACCUTANE [Suspect]
     Indication: ACNE
     Route: 048
     Dates: start: 198404, end: 198708

REACTIONS (8)
  - Injury [Unknown]
  - Colitis ulcerative [Unknown]
  - Chest pain [Unknown]
  - Visual impairment [Unknown]
  - Depression [Unknown]
  - Panic attack [Unknown]
  - Inflammatory bowel disease [Unknown]
  - Perirectal abscess [Unknown]
